FAERS Safety Report 21548933 (Version 1)
Quarter: 2022Q4

REPORT INFORMATION
  Report Type: Spontaneous
  Country: US (occurrence: None)
  Receive Date: 20221102
  Receipt Date: 20221102
  Transmission Date: 20230113
  Serious: Yes (Disabling)
  Sender: FDA-Public Use
  Company Number: None

PATIENT
  Age: 91 Year
  Sex: Female
  Weight: 47.7 kg

DRUGS (1)
  1. DUPIXENT [Suspect]
     Active Substance: DUPILUMAB
     Indication: Eczema
     Dosage: OTHER QUANTITY : 1 INJECTION(S)?OTHER FREQUENCY : EVERY 2 TO 4 WEEKS?OTHER ROUTE : SUBCUTANEOUS INJE
     Route: 058
     Dates: start: 20210401

REACTIONS (2)
  - Vision blurred [None]
  - Ocular discomfort [None]

NARRATIVE: CASE EVENT DATE: 20221004
